FAERS Safety Report 9031625 (Version 1)
Quarter: 2013Q1

REPORT INFORMATION
  Report Type: Spontaneous
  Country: US (occurrence: US)
  Receive Date: 20130124
  Receipt Date: 20130124
  Transmission Date: 20140127
  Serious: Yes (Other)
  Sender: FDA-Public Use
  Company Number: US-ROCHE-784941

PATIENT
  Age: 24 None
  Sex: Male
  Weight: 57.66 kg

DRUGS (3)
  1. ACCUTANE [Suspect]
     Indication: ACNE
     Route: 065
     Dates: start: 1997, end: 1998
  2. ACCUTANE [Suspect]
     Route: 065
     Dates: start: 199908, end: 199911
  3. ACCUTANE [Suspect]
     Route: 065
     Dates: start: 1999, end: 2000

REACTIONS (11)
  - Inflammatory bowel disease [Unknown]
  - Crohn^s disease [Unknown]
  - Emotional distress [Not Recovered/Not Resolved]
  - Intestinal obstruction [Unknown]
  - Intestinal haemorrhage [Unknown]
  - Perirectal abscess [Unknown]
  - Abdominal abscess [Unknown]
  - Colitis ulcerative [Unknown]
  - Depression [Unknown]
  - Suicidal ideation [Unknown]
  - Irritable bowel syndrome [Unknown]
